FAERS Safety Report 23808448 (Version 1)
Quarter: 2024Q2

REPORT INFORMATION
  Report Type: Spontaneous
  Country: KR (occurrence: KR)
  Receive Date: 20240502
  Receipt Date: 20240502
  Transmission Date: 20240716
  Serious: No
  Sender: FDA-Public Use
  Company Number: KR-PFIZER INC-PV202400054280

PATIENT
  Age: 7 Year
  Sex: Male

DRUGS (1)
  1. GENOTROPIN [Suspect]
     Active Substance: SOMATROPIN
     Indication: Short stature
     Dosage: 2.3 IU, 6 TIMES PER WEEK
     Dates: start: 202306

REACTIONS (2)
  - Incorrect dose administered by device [Unknown]
  - Device use error [Unknown]
